FAERS Safety Report 9185773 (Version 1)
Quarter: 2012Q4

REPORT INFORMATION
  Report Type: 
  Country: US (occurrence: US)
  Receive Date: 20121031
  Receipt Date: 20121031
  Transmission Date: 20130627
  Serious: No
  Sender: FDA-Public Use
  Company Number: US-009507513-1210USA012986

PATIENT
  Age: 29 Month
  Sex: Female

DRUGS (1)
  1. SINGULAIR [Suspect]
     Dosage: Registration # 20830
     Route: 048
     Dates: start: 20121025

REACTIONS (2)
  - Accidental overdose [Unknown]
  - No adverse event [Unknown]
